FAERS Safety Report 8048015-9 (Version None)
Quarter: 2012Q1

REPORT INFORMATION
  Report Type: 
  Country: None (occurrence: None)
  Receive Date: 20120117
  Receipt Date: 20120110
  Transmission Date: 20120608
  Serious: Yes (Hospitalization)
  Sender: FDA-Public Use
  Company Number: US-BRISTOL-MYERS SQUIBB COMPANY-14137517

PATIENT
  Age: 60 Year
  Sex: Male

DRUGS (6)
  1. CORTEF [Concomitant]
  2. ENTOCORT EC [Concomitant]
  3. GABAPENTIN [Concomitant]
  4. IPILIMUMAB [Suspect]
     Indication: MALIGNANT MELANOMA
     Dosage: INITIATED ON 06MAR08
     Route: 042
     Dates: start: 20080306, end: 20080327
  5. PREVACID [Concomitant]
  6. MECLIZINE [Concomitant]

REACTIONS (2)
  - INTESTINAL PERFORATION [None]
  - DIARRHOEA [None]
